FAERS Safety Report 21352104 (Version 1)
Quarter: 2022Q3

REPORT INFORMATION
  Report Type: Spontaneous
  Country: ES (occurrence: ES)
  Receive Date: 20220920
  Receipt Date: 20220920
  Transmission Date: 20221027
  Serious: Yes (Other)
  Sender: FDA-Public Use
  Company Number: None

PATIENT
  Age: 41 Year
  Sex: Female

DRUGS (1)
  1. PROTOPIC [Suspect]
     Active Substance: TACROLIMUS
     Indication: Product used for unknown indication

REACTIONS (6)
  - Maculopathy [Recovering/Resolving]
  - Retinal deposits [Unknown]
  - Detachment of retinal pigment epithelium [Unknown]
  - Tremor [Unknown]
  - Headache [Unknown]
  - Retinal ischaemia [Unknown]
